FAERS Safety Report 8962490 (Version 1)
Quarter: 2012Q4

REPORT INFORMATION
  Report Type: Spontaneous
  Country: US (occurrence: None)
  Receive Date: 20121211
  Receipt Date: 20121211
  Transmission Date: 20130627
  Serious: Yes (Other)
  Sender: FDA-Public Use
  Company Number: None

PATIENT
  Age: 10 Year
  Sex: Male
  Weight: 43.09 kg

DRUGS (1)
  1. ADDERALL XR [Suspect]
     Indication: ADD
     Route: 048
     Dates: start: 20090507, end: 200904

REACTIONS (1)
  - Tic [None]
